FAERS Safety Report 9611053 (Version 1)
Quarter: 2013Q4

REPORT INFORMATION
  Report Type: Spontaneous
  Country: GB (occurrence: GB)
  Receive Date: 20131009
  Receipt Date: 20131009
  Transmission Date: 20140711
  Serious: Yes (Life-Threatening)
  Sender: FDA-Public Use
  Company Number: GB-WATSON-2013-18066

PATIENT
  Age: 44 Year
  Sex: Female

DRUGS (7)
  1. ATRACURIUM (UNKNOWN) [Suspect]
     Indication: MUSCLE RELAXANT THERAPY
     Dosage: 35 MG, UNKNOWN
     Route: 042
     Dates: start: 20130907, end: 20130907
  2. MIDAZOLAM [Concomitant]
     Indication: ANXIOLYTIC THERAPY
     Dosage: 3 MG, UNKNOWN
     Route: 042
     Dates: start: 20130907, end: 20130907
  3. PROPOFOL [Concomitant]
     Indication: GENERAL ANAESTHESIA
     Dosage: 200 MG, UNKNOWN
     Route: 042
     Dates: start: 20130907, end: 20130907
  4. AUGMENTIN                          /00756801/ [Concomitant]
     Indication: ANTIBIOTIC PROPHYLAXIS
     Dosage: 1000MG/200MG
     Route: 042
     Dates: start: 20130907, end: 20130907
  5. MORPHINE SULPHATE [Concomitant]
     Indication: ANALGESIC THERAPY
     Dosage: 2 MG, UNKNOWN
     Route: 042
     Dates: start: 20130907, end: 20130907
  6. ONDANSETRON [Concomitant]
     Indication: ANTIEMETIC SUPPORTIVE CARE
     Dosage: 4 MG, UNKNOWN
     Route: 042
     Dates: start: 20130907, end: 20130907
  7. LIGNOCAINE                         /00033401/ [Concomitant]
     Indication: PRODUCT USED FOR UNKNOWN INDICATION
     Dosage: 2%; PROPOFOL MIXED WITH 2% LIGNOCAINE
     Route: 065
     Dates: start: 20130907, end: 20130907

REACTIONS (2)
  - Anaphylactic reaction [Recovered/Resolved]
  - Circulatory collapse [Recovered/Resolved]
